FAERS Safety Report 20414295 (Version 6)
Quarter: 2022Q1

REPORT INFORMATION
  Report Type: Spontaneous
  Country: US (occurrence: US)
  Receive Date: 20220202
  Receipt Date: 20220226
  Transmission Date: 20220423
  Serious: No
  Sender: FDA-Public Use
  Company Number: US-UNITED THERAPEUTICS-UNT-2022-001417

PATIENT
  Age: 69 Year
  Sex: Male
  Weight: 83.447 kg

DRUGS (6)
  1. TYVASO [Suspect]
     Active Substance: TREPROSTINIL
     Indication: Pulmonary arterial hypertension
     Dosage: UNK
     Dates: start: 20220113
  2. TYVASO [Suspect]
     Active Substance: TREPROSTINIL
     Dosage: 18-72 ?G, QID
     Dates: start: 202201
  3. TYVASO [Suspect]
     Active Substance: TREPROSTINIL
     Dosage: 18 ?G
  4. TYVASO [Suspect]
     Active Substance: TREPROSTINIL
     Dosage: UNK
  5. TYVASO [Suspect]
     Active Substance: TREPROSTINIL
     Dosage: 42 ?G
     Dates: start: 20220214
  6. AMLODIPINE [Suspect]
     Active Substance: AMLODIPINE BESYLATE
     Indication: Product used for unknown indication
     Dosage: UNK
     Route: 065

REACTIONS (24)
  - Throat irritation [Not Recovered/Not Resolved]
  - Productive cough [Unknown]
  - Oropharyngeal pain [Unknown]
  - Flushing [Unknown]
  - Cough [Not Recovered/Not Resolved]
  - Hypotension [Unknown]
  - Pallor [Unknown]
  - Dizziness [Unknown]
  - Asthenia [Unknown]
  - Dysphonia [Unknown]
  - Chest discomfort [Unknown]
  - Weight increased [Unknown]
  - Swelling face [Unknown]
  - Abdominal distension [Unknown]
  - Oedema peripheral [Not Recovered/Not Resolved]
  - Dizziness postural [Unknown]
  - Disorientation [Unknown]
  - Dyspnoea exertional [Unknown]
  - Visual impairment [Not Recovered/Not Resolved]
  - Blood pressure increased [Unknown]
  - Bronchial irritation [Unknown]
  - Urine output decreased [Unknown]
  - Pulmonary pain [Unknown]
  - Discomfort [Unknown]

NARRATIVE: CASE EVENT DATE: 20220101
